FAERS Safety Report 7630367-2 (Version None)
Quarter: 2011Q3

REPORT INFORMATION
  Report Type: 
  Country: None (occurrence: None)
  Receive Date: 20110722
  Receipt Date: 20110630
  Transmission Date: 20111222
  Serious: Yes (Death, Hospitalization)
  Sender: FDA-Public Use
  Company Number: US-GLAXOSMITHKLINE-A0840602A

PATIENT
  Age: 70 Year
  Sex: Male
  Weight: 84.1 kg

DRUGS (6)
  1. HYDROCHLOROTHIAZIDE [Concomitant]
  2. LISINOPRIL [Concomitant]
  3. NIFEDIPINE [Concomitant]
  4. GLIPIZIDE [Concomitant]
  5. AVANDIA [Suspect]
     Indication: DIABETES MELLITUS
     Dosage: 4MG SEE DOSAGE TEXT
     Route: 048
     Dates: start: 20040101, end: 20060911
  6. ZOCOR [Concomitant]

REACTIONS (1)
  - CARDIAC ARREST [None]
